FAERS Safety Report 19155039 (Version 1)
Quarter: 2021Q2

REPORT INFORMATION
  Report Type: Spontaneous
  Country: RS (occurrence: RS)
  Receive Date: 20210419
  Receipt Date: 20210419
  Transmission Date: 20210717
  Serious: Yes (Other)
  Sender: FDA-Public Use
  Company Number: RS-PFIZER INC-2021377174

PATIENT
  Age: 69 Year
  Sex: Male

DRUGS (4)
  1. LINEZOLID. [Suspect]
     Active Substance: LINEZOLID
     Indication: PNEUMONIA
  2. LINEZOLID. [Suspect]
     Active Substance: LINEZOLID
     Indication: COVID-19 PNEUMONIA
     Dosage: 600 MG/12H (HOURS)
  3. IMIPENEM [Suspect]
     Active Substance: IMIPENEM
     Indication: PNEUMONIA
  4. IMIPENEM [Suspect]
     Active Substance: IMIPENEM
     Indication: COVID-19 PNEUMONIA
     Dosage: 500 MG/6H

REACTIONS (5)
  - White blood cell count increased [Unknown]
  - Pneumonia [Unknown]
  - Clostridium difficile infection [Unknown]
  - Pyrexia [Unknown]
  - Off label use [Unknown]
